FAERS Safety Report 6687275-3 (Version None)
Quarter: 2010Q2

REPORT INFORMATION
  Report Type: 
  Country: None (occurrence: None)
  Receive Date: 20100415
  Receipt Date: 20100406
  Transmission Date: 20101027
  Serious: Yes (Other)
  Sender: FDA-Public Use
  Company Number: US-1181358

PATIENT
  Age: 83 Year
  Sex: Female
  Weight: 79.3795 kg

DRUGS (3)
  1. AZOPT [Suspect]
     Indication: ANGLE CLOSURE GLAUCOMA
     Dosage: (ONE GTT BID OU OPHTHALMIC)
     Route: 047
     Dates: start: 20100223, end: 20100224
  2. ALTACE [Concomitant]
  3. TENORMIN [Concomitant]

REACTIONS (5)
  - DEHYDRATION [None]
  - NAUSEA [None]
  - SYNCOPE [None]
  - VEIN DISORDER [None]
  - VOMITING [None]
